FAERS Safety Report 7547359-4 (Version None)
Quarter: 2011Q2

REPORT INFORMATION
  Report Type: 
  Country: None (occurrence: None)
  Receive Date: 20110614
  Receipt Date: 20110606
  Transmission Date: 20111010
  Serious: Yes (Other)
  Sender: FDA-Public Use
  Company Number: NL-BAXTER-2011BH014128

PATIENT
  Age: 30 Year
  Sex: Female

DRUGS (9)
  1. GAMMAGARD S/D [Suspect]
     Route: 042
     Dates: start: 20110411
  2. ANTIEPILEPTICS [Concomitant]
     Indication: PRODUCT USED FOR UNKNOWN INDICATION
     Route: 065
  3. GAMMAGARD S/D [Suspect]
     Route: 042
     Dates: start: 20110324
  4. ANTIEPILEPTIC [Suspect]
     Indication: EPILEPSY
  5. GAMMAGARD S/D [Suspect]
     Indication: EPILEPSY
     Route: 042
     Dates: start: 20091116
  6. GAMMAGARD S/D [Suspect]
     Route: 042
     Dates: start: 20110324
  7. INSULIN [Concomitant]
     Indication: PRODUCT USED FOR UNKNOWN INDICATION
     Route: 065
  8. GAMMAGARD S/D [Suspect]
     Indication: OFF LABEL USE
     Route: 042
     Dates: start: 20091116
  9. GAMMAGARD S/D [Suspect]
     Route: 042
     Dates: start: 20110411

REACTIONS (2)
  - ABORTION SPONTANEOUS [None]
  - DRUG EXPOSURE DURING PREGNANCY [None]
